APPROVED DRUG PRODUCT: VANOS
Active Ingredient: FLUOCINONIDE
Strength: 0.1%
Dosage Form/Route: CREAM;TOPICAL
Application: N021758 | Product #001 | TE Code: AB
Applicant: BAUSCH HEALTH US LLC
Approved: Feb 11, 2005 | RLD: Yes | RS: Yes | Type: RX